FAERS Safety Report 12594873 (Version 2)
Quarter: 2016Q3

REPORT INFORMATION
  Report Type: Spontaneous
  Country: AU (occurrence: AU)
  Receive Date: 20160726
  Receipt Date: 20160729
  Transmission Date: 20161109
  Serious: Yes (Other)
  Sender: FDA-Public Use
  Company Number: AU-PFIZER INC-2016353093

PATIENT
  Age: 25 Year
  Sex: Male

DRUGS (1)
  1. LYRICA [Suspect]
     Active Substance: PREGABALIN
     Dosage: 75 MG, UNK

REACTIONS (3)
  - Drug dependence [Recovered/Resolved]
  - Circulatory collapse [Recovered/Resolved]
  - Drug abuse [Recovered/Resolved]
